FAERS Safety Report 19137174 (Version 1)
Quarter: 2021Q2

REPORT INFORMATION
  Report Type: Spontaneous
  Country: US (occurrence: US)
  Receive Date: 20210414
  Receipt Date: 20210414
  Transmission Date: 20210717
  Serious: No
  Sender: FDA-Public Use
  Company Number: US-FERRINGPH-2021FE00210

PATIENT
  Age: 27 Year
  Sex: Female
  Weight: 63.49 kg

DRUGS (2)
  1. FIRMAGON [Suspect]
     Active Substance: DEGARELIX ACETATE
     Indication: PRODUCT USED FOR UNKNOWN INDICATION
     Dosage: UNK, ONCE/SINGLE
     Route: 065
     Dates: start: 20210121, end: 20210121
  2. CABERGOLINE. [Concomitant]
     Active Substance: CABERGOLINE
     Indication: INFERTILITY
     Dosage: TWICE PER WEEK
     Route: 065

REACTIONS (1)
  - Occupational exposure to product [Recovered/Resolved]

NARRATIVE: CASE EVENT DATE: 20210121
